FAERS Safety Report 9053327 (Version 1)
Quarter: 2013Q1

REPORT INFORMATION
  Report Type: Spontaneous
  Country: US (occurrence: US)
  Receive Date: 20130207
  Receipt Date: 20130207
  Transmission Date: 20140127
  Serious: Yes (Hospitalization)
  Sender: FDA-Public Use
  Company Number: PHHY2012US085605

PATIENT
  Sex: Female

DRUGS (1)
  1. HYDRALAZINE [Suspect]
     Indication: BLOOD PRESSURE ABNORMAL
     Dosage: UNK UKN, UNK

REACTIONS (1)
  - Pulmonary oedema [Unknown]
